FAERS Safety Report 9718062 (Version 1)
Quarter: 2013Q4

REPORT INFORMATION
  Report Type: Spontaneous
  Country: FR (occurrence: FR)
  Receive Date: 20131127
  Receipt Date: 20131127
  Transmission Date: 20140711
  Serious: Yes (Death)
  Sender: FDA-Public Use
  Company Number: FR-PFIZER INC-2013335201

PATIENT
  Age: 71 Year
  Sex: Male

DRUGS (11)
  1. TAHOR [Suspect]
     Dosage: UNK
     Route: 048
  2. ALTEIS [Suspect]
     Dosage: UNK
     Route: 048
  3. BACLOFEN [Suspect]
     Indication: ALCOHOL REHABILITATION
     Dosage: 4 DF, 3X/DAY
     Route: 048
     Dates: start: 201303
  4. ADANCOR [Suspect]
     Dosage: UNK
     Route: 048
  5. PLAVIX [Suspect]
     Dosage: UNK
     Route: 048
  6. ALLOPURINOL [Suspect]
     Dosage: UNK
     Route: 048
  7. BI-TILDIEM [Suspect]
     Dosage: UNK
     Route: 048
  8. INEXIUM [Suspect]
     Dosage: 40 MG, UNK
     Route: 048
  9. ZOPICLONE [Suspect]
     Dosage: UNK
     Route: 048
  10. NITRIDERM [Suspect]
     Dosage: UNK
     Route: 062
  11. PROZAC [Suspect]
     Dosage: UNK
     Route: 048

REACTIONS (1)
  - Sudden death [Fatal]
